FAERS Safety Report 19194428 (Version 1)
Quarter: 2021Q2

REPORT INFORMATION
  Report Type: Spontaneous
  Country: US (occurrence: US)
  Receive Date: 20210429
  Receipt Date: 20210429
  Transmission Date: 20210717
  Serious: Yes (Other)
  Sender: FDA-Public Use
  Company Number: None

PATIENT
  Age: 44 Year
  Sex: Female
  Weight: 47.7 kg

DRUGS (1)
  1. BOTOX [Suspect]
     Active Substance: ONABOTULINUMTOXINA
     Indication: MIGRAINE
     Dosage: ?          QUANTITY:31 INJECTION(S);OTHER FREQUENCY:EVERY 3 MONTHS;?
     Route: 058
     Dates: start: 20210401

REACTIONS (2)
  - Neck pain [None]
  - Muscular weakness [None]

NARRATIVE: CASE EVENT DATE: 20210402
